FAERS Safety Report 12786549 (Version 1)
Quarter: 2016Q3

REPORT INFORMATION
  Report Type: Spontaneous
  Country: US (occurrence: US)
  Receive Date: 20160927
  Receipt Date: 20160927
  Transmission Date: 20161109
  Serious: No
  Sender: FDA-Public Use
  Company Number: US-FRI-1000085489

PATIENT
  Sex: Female
  Weight: 56.69 kg

DRUGS (1)
  1. LINZESS [Suspect]
     Active Substance: LINACLOTIDE
     Dosage: 145 ?G, UNK
     Route: 048
     Dates: start: 2016

REACTIONS (5)
  - Diarrhoea [Not Recovered/Not Resolved]
  - Expired product administered [Unknown]
  - Muscle spasms [Not Recovered/Not Resolved]
  - Constipation [Unknown]
  - Off label use [Unknown]
